FAERS Safety Report 16637034 (Version 1)
Quarter: 2019Q3

REPORT INFORMATION
  Report Type: Spontaneous
  Country: US (occurrence: US)
  Receive Date: 20190726
  Receipt Date: 20190726
  Transmission Date: 20191004
  Serious: Yes (Hospitalization, Other)
  Sender: FDA-Public Use
  Company Number: US-PFIZER INC-2019316655

PATIENT
  Age: 77 Year
  Sex: Female

DRUGS (1)
  1. VYNDAQEL [Suspect]
     Active Substance: TAFAMIDIS MEGLUMINE
     Indication: AMYLOIDOSIS
     Dosage: 80 MG, DAILY
     Route: 048

REACTIONS (12)
  - Restrictive cardiomyopathy [Unknown]
  - Neuropathy peripheral [Unknown]
  - Dyspnoea [Recovering/Resolving]
  - Balance disorder [Unknown]
  - Oedema [Unknown]
  - Amyloidosis [Unknown]
  - Blood pressure abnormal [Unknown]
  - Hypoaesthesia [Unknown]
  - Paraesthesia [Unknown]
  - Contusion [Unknown]
  - Tongue disorder [Unknown]
  - Gait disturbance [Unknown]
